FAERS Safety Report 9725360 (Version 1)
Quarter: 2013Q4

REPORT INFORMATION
  Report Type: Spontaneous
  Country: US (occurrence: None)
  Receive Date: 20131129
  Receipt Date: 20131129
  Transmission Date: 20140711
  Serious: Yes (Other)
  Sender: FDA-Public Use
  Company Number: 2013-US-003068

PATIENT
  Age: 62 Year
  Sex: Female

DRUGS (3)
  1. XYREM [Suspect]
     Indication: ANKYLOSING SPONDYLITIS
     Route: 048
     Dates: start: 200511, end: 200610
  2. LYRICA [Concomitant]
  3. VITAMINS [Concomitant]

REACTIONS (4)
  - Sleep apnoea syndrome [None]
  - Spinal osteoarthritis [None]
  - Osteoporosis [None]
  - Muscle spasms [None]
